FAERS Safety Report 9625493 (Version 1)
Quarter: 2013Q4

REPORT INFORMATION
  Report Type: Spontaneous
  Country: US (occurrence: US)
  Receive Date: 20131016
  Receipt Date: 20131016
  Transmission Date: 20140711
  Serious: Yes (Hospitalization, Other)
  Sender: FDA-Public Use
  Company Number: US-PFIZER INC-2013296346

PATIENT
  Age: 53 Year
  Sex: Male
  Weight: 63.5 kg

DRUGS (1)
  1. CHANTIX [Suspect]
     Indication: SMOKING CESSATION THERAPY
     Dosage: UNK

REACTIONS (4)
  - Cerebral thrombosis [Unknown]
  - Fall [Unknown]
  - Head injury [Unknown]
  - Stress [Unknown]
